FAERS Safety Report 8538476-0 (Version None)
Quarter: 2012Q3

REPORT INFORMATION
  Report Type: 
  Country: None (occurrence: None)
  Receive Date: 20120726
  Receipt Date: 20120720
  Transmission Date: 20120928
  Serious: Yes (Death)
  Sender: FDA-Public Use
  Company Number: US-009507513-2012SP036126

PATIENT

DRUGS (3)
  1. SAPHRIS [Suspect]
     Indication: BIPOLAR DISORDER
     Dosage: 5 MG, QD
     Route: 060
     Dates: start: 20120611, end: 20120612
  2. LAMICTAL [Concomitant]
     Dosage: 200 MG, QD
  3. LITHIUM CARBONATE [Concomitant]
     Dosage: 300 MG, BID

REACTIONS (5)
  - INAPPROPRIATE SCHEDULE OF DRUG ADMINISTRATION [None]
  - SEDATION [None]
  - DIZZINESS [None]
  - UNDERDOSE [None]
  - NAUSEA [None]
